FAERS Safety Report 7028471-5 (Version None)
Quarter: 2010Q3

REPORT INFORMATION
  Report Type: 
  Country: None (occurrence: None)
  Receive Date: 20100920
  Receipt Date: 20100721
  Transmission Date: 20110219
  Serious: Yes (Hospitalization, Other)
  Sender: FDA-Public Use
  Company Number: 2010036970

PATIENT
  Age: 21 Year
  Sex: Female
  Weight: 49 kg

DRUGS (1)
  1. DILANTIN-125 [Suspect]
     Indication: CONVULSION
     Dosage: 100MG, 2X/DAY AND 150MG, 1X/DAY, ORAL
     Route: 048
     Dates: start: 20071010, end: 20071101

REACTIONS (1)
  - STEVENS-JOHNSON SYNDROME [None]
